FAERS Safety Report 7773104-3 (Version None)
Quarter: 2011Q3

REPORT INFORMATION
  Report Type: 
  Country: None (occurrence: None)
  Receive Date: 20110922
  Receipt Date: 20101203
  Transmission Date: 20111222
  Serious: No
  Sender: FDA-Public Use
  Company Number: US-ASTRAZENECA-2007UW27745

PATIENT
  Age: 51 Year
  Sex: Female
  Weight: 95.3 kg

DRUGS (16)
  1. SEROQUEL [Suspect]
     Dosage: 100 TO 200MG
     Route: 048
     Dates: start: 20031006, end: 20070207
  2. SEROQUEL [Suspect]
     Dosage: 100 TO 200MG
     Route: 048
     Dates: start: 20031006, end: 20070207
  3. TRIAVIL [Concomitant]
     Dosage: 2/25
     Dates: start: 20080317
  4. SEROQUEL [Suspect]
     Indication: SCHIZOPHRENIA
     Dosage: 50-100 MG
     Route: 048
     Dates: start: 20020101, end: 20070501
  5. SEROQUEL [Suspect]
     Indication: DEPRESSION
     Dosage: 50-100 MG
     Route: 048
     Dates: start: 20020101, end: 20070501
  6. SEROQUEL [Suspect]
     Route: 048
     Dates: start: 20050101
  7. REMERON [Concomitant]
     Dates: start: 20050101
  8. AMBIEN [Concomitant]
     Dates: start: 20080317
  9. SEROQUEL [Suspect]
     Indication: BIPOLAR DISORDER
     Dosage: 50-100 MG
     Route: 048
     Dates: start: 20020101, end: 20070501
  10. SEROQUEL [Suspect]
     Dosage: 100 TO 200MG
     Route: 048
     Dates: start: 20031006, end: 20070207
  11. SEROQUEL [Suspect]
     Dosage: 100 TO 200MG
     Route: 048
     Dates: start: 20031006, end: 20070207
  12. SEROQUEL [Suspect]
     Route: 048
     Dates: start: 20050101
  13. SEROQUEL [Suspect]
     Indication: ANXIETY
     Dosage: 50-100 MG
     Route: 048
     Dates: start: 20020101, end: 20070501
  14. SEROQUEL [Suspect]
     Route: 048
     Dates: start: 20050101
  15. SEROQUEL [Suspect]
     Route: 048
     Dates: start: 20050101
  16. ABILIFY [Concomitant]

REACTIONS (9)
  - OBESITY [None]
  - MALAISE [None]
  - DIABETIC COMPLICATION [None]
  - DIABETES MELLITUS INADEQUATE CONTROL [None]
  - HYPERLIPIDAEMIA [None]
  - TYPE 2 DIABETES MELLITUS [None]
  - BLOOD TRIGLYCERIDES INCREASED [None]
  - BLOOD CHOLESTEROL INCREASED [None]
  - VISUAL IMPAIRMENT [None]
